APPROVED DRUG PRODUCT: VELOSEF
Active Ingredient: CEPHRADINE
Strength: 4GM/VIAL
Dosage Form/Route: INJECTABLE;INJECTION
Application: A061976 | Product #005
Applicant: APOTHECON INC DIV BRISTOL MYERS SQUIBB
Approved: Approved Prior to Jan 1, 1982 | RLD: No | RS: No | Type: DISCN